FAERS Safety Report 6329343-1 (Version None)
Quarter: 2009Q3

REPORT INFORMATION
  Report Type: 
  Country: None (occurrence: None)
  Receive Date: 20090824
  Receipt Date: 20090824
  Transmission Date: 20100115
  Serious: Yes (Life-Threatening)
  Sender: FDA-Public Use
  Company Number: None

PATIENT
  Age: 13 Year
  Sex: Female
  Weight: 44.9061 kg

DRUGS (1)
  1. YAZ [Suspect]

REACTIONS (12)
  - ABDOMINAL PAIN [None]
  - ABDOMINAL PAIN UPPER [None]
  - AGGRESSION [None]
  - ANXIETY [None]
  - ASTHENIA [None]
  - DEPRESSION [None]
  - FATIGUE [None]
  - HEADACHE [None]
  - IRRITABILITY [None]
  - NERVOUSNESS [None]
  - SOCIAL AVOIDANT BEHAVIOUR [None]
  - SUICIDAL IDEATION [None]
